FAERS Safety Report 5808881-1 (Version None)
Quarter: 2008Q3

REPORT INFORMATION
  Report Type: 
  Country: None (occurrence: None)
  Receive Date: 20080714
  Receipt Date: 20080704
  Transmission Date: 20090109
  Serious: Yes (Life-Threatening, Hospitalization)
  Sender: FDA-Public Use
  Company Number: TR-ASTRAZENECA-2008SE03293

PATIENT
  Age: 34 Year
  Sex: Male

DRUGS (4)
  1. SEROQUEL [Suspect]
     Indication: BIPOLAR DISORDER
     Route: 048
     Dates: start: 20070601
  2. SEROQUEL [Suspect]
     Route: 048
     Dates: start: 20070601, end: 20080501
  3. SEROQUEL [Suspect]
     Route: 048
     Dates: start: 20080301
  4. LAMICTAL [Concomitant]
     Indication: BIPOLAR DISORDER
     Dates: start: 20080101

REACTIONS (3)
  - ORTHOSTATIC HYPOTENSION [None]
  - OVERDOSE [None]
  - STUPOR [None]
